FAERS Safety Report 12986717 (Version 1)
Quarter: 2016Q4

REPORT INFORMATION
  Report Type: Spontaneous
  Country: US (occurrence: US)
  Receive Date: 20161130
  Receipt Date: 20161130
  Transmission Date: 20170207
  Serious: Yes (Other)
  Sender: FDA-Public Use
  Company Number: US-PFIZER INC-2016551116

PATIENT
  Age: 47 Year
  Sex: Male
  Weight: 129.25 kg

DRUGS (3)
  1. EFFEXOR XR [Suspect]
     Active Substance: VENLAFAXINE HYDROCHLORIDE
     Dosage: 150 MG, 1X/DAY
     Route: 048
  2. NEURONTIN [Suspect]
     Active Substance: GABAPENTIN
     Indication: PHANTOM PAIN
     Dosage: 2000 MG, DAILY, (800 MG IN THE MORNING, 400 MG IN NOON AND 800 MG AT NIGHT)
     Route: 048
     Dates: start: 199908
  3. EFFEXOR XR [Suspect]
     Active Substance: VENLAFAXINE HYDROCHLORIDE
     Indication: PHANTOM PAIN
     Dosage: 75 MG, UNK
     Route: 048
     Dates: start: 199908

REACTIONS (3)
  - Thinking abnormal [Recovered/Resolved]
  - Weight increased [Not Recovered/Not Resolved]
  - Suicidal ideation [Recovered/Resolved]

NARRATIVE: CASE EVENT DATE: 201602
